FAERS Safety Report 11781449 (Version 2)
Quarter: 2023Q1

REPORT INFORMATION
  Report Type: Report from Study
  Country: NZ (occurrence: NZ)
  Receive Date: 20151126
  Receipt Date: 20230301
  Transmission Date: 20230417
  Serious: Yes (Other)
  Sender: FDA-Public Use
  Company Number: NZ-JNJFOC-20151121797

PATIENT
  Age: 75 Year
  Sex: Male

DRUGS (2)
  1. ZYTIGA [Suspect]
     Active Substance: ABIRATERONE ACETATE
     Indication: Prostate cancer metastatic
     Route: 048
     Dates: start: 201410
  2. ZOMETA [Suspect]
     Active Substance: ZOLEDRONIC ACID
     Indication: Product used for unknown indication
     Route: 065

REACTIONS (6)
  - Osteonecrosis of jaw [Not Recovered/Not Resolved]
  - Lower limb fracture [Unknown]
  - Hypertonia [Unknown]
  - Muscle mass [Unknown]
  - Muscular weakness [Unknown]
  - Weight increased [Unknown]
